FAERS Safety Report 7766666-3 (Version None)
Quarter: 2011Q3

REPORT INFORMATION
  Report Type: 
  Country: None (occurrence: None)
  Receive Date: 20110922
  Receipt Date: 20110918
  Transmission Date: 20111222
  Serious: No
  Sender: FDA-Public Use
  Company Number: US-TEVA-301629USA

PATIENT
  Age: 23 Year
  Sex: Female
  Weight: 54.48 kg

DRUGS (2)
  1. PLAN B ONE-STEP [Suspect]
     Indication: POST COITAL CONTRACEPTION
     Dosage: 1.5 MILLIGRAM;
     Route: 048
     Dates: start: 20110916, end: 20110916
  2. EFFEXOR [Concomitant]
     Indication: ANXIETY

REACTIONS (3)
  - DIZZINESS [None]
  - DYSPNOEA [None]
  - NAUSEA [None]
